FAERS Safety Report 5016205-5 (Version None)
Quarter: 2006Q2

REPORT INFORMATION
  Report Type: 
  Country: None (occurrence: None)
  Receive Date: 20060414
  Receipt Date: 20060124
  Transmission Date: 20061013
  Serious: No
  Sender: FDA-Public Use
  Company Number: 2006SP000424

PATIENT
  Age: 54 Year
  Sex: Female
  Weight: 81.6475 kg

DRUGS (5)
  1. LUNESTA [Suspect]
     Indication: INSOMNIA
     Dosage: 3 MG; HS; ORAL
     Route: 048
     Dates: start: 20060123
  2. ATORVASTATIN CALCIUM [Concomitant]
  3. NORTRIPTYLINE HCL [Concomitant]
  4. NEXIUM [Concomitant]
  5. ESTROGEN W/ MEDROXYPROGESTERON [Concomitant]

REACTIONS (1)
  - INITIAL INSOMNIA [None]
